FAERS Safety Report 4857000-7 (Version None)
Quarter: 2005Q4

REPORT INFORMATION
  Report Type: 
  Country: None (occurrence: None)
  Receive Date: 20051219
  Receipt Date: 20041208
  Transmission Date: 20060501
  Serious: No
  Sender: FDA-Public Use
  Company Number: US-GLAXOSMITHKLINE-A0536473A

PATIENT
  Age: 58 Year
  Sex: Female

DRUGS (2)
  1. EQUATE NTS 21MG [Suspect]
  2. WELLBUTRIN [Concomitant]

REACTIONS (3)
  - APPLICATION SITE ERYTHEMA [None]
  - BLOOD PRESSURE INCREASED [None]
  - DEPRESSED MOOD [None]
